FAERS Safety Report 25740243 (Version 1)
Quarter: 2025Q3

REPORT INFORMATION
  Report Type: Spontaneous
  Country: US (occurrence: None)
  Receive Date: 20250828
  Receipt Date: 20250828
  Transmission Date: 20251021
  Serious: No
  Sender: FDA-CTU
  Company Number: None

PATIENT
  Age: 23 Year
  Weight: 72 kg

DRUGS (5)
  1. QELBREE [Suspect]
     Active Substance: VILOXAZINE HYDROCHLORIDE
     Indication: Attention deficit hyperactivity disorder
     Dosage: FREQUENCY : AT BEDTIME;?
     Route: 048
     Dates: start: 20250812, end: 20250826
  2. TESTOSTERONE [Concomitant]
     Active Substance: TESTOSTERONE
  3. NORETHINDRONE [Concomitant]
     Active Substance: NORETHINDRONE
  4. TYLENOL [Concomitant]
     Active Substance: ACETAMINOPHEN
  5. DRAMAMINE [Concomitant]
     Active Substance: DIMENHYDRINATE

REACTIONS (7)
  - Withdrawal syndrome [None]
  - Nausea [None]
  - Vomiting [None]
  - Diarrhoea [None]
  - Headache [None]
  - Impaired work ability [None]
  - Bedridden [None]

NARRATIVE: CASE EVENT DATE: 20250828
